FAERS Safety Report 13833202 (Version 2)
Quarter: 2017Q3

REPORT INFORMATION
  Report Type: Spontaneous
  Country: ES (occurrence: ES)
  Receive Date: 20170804
  Receipt Date: 20170810
  Transmission Date: 20171127
  Serious: Yes (Other)
  Sender: FDA-Public Use
  Company Number: ES-APOTEX-2017AP016144

PATIENT
  Age: 31 Year
  Sex: Female

DRUGS (2)
  1. DEFLAZACORT [Concomitant]
     Active Substance: DEFLAZACORT
     Indication: IMMUNE THROMBOCYTOPENIC PURPURA
     Dosage: 105 MG, DAILY
     Route: 048
  2. RANITIDINA APOTEX COMPRIMIDOS RECUBIERTOS [Suspect]
     Active Substance: RANITIDINE
     Indication: PRODUCT USED FOR UNKNOWN INDICATION
     Dosage: UNK
     Route: 065

REACTIONS (1)
  - Toxic epidermal necrolysis [Recovered/Resolved]
